FAERS Safety Report 25473208 (Version 1)
Quarter: 2025Q2

REPORT INFORMATION
  Report Type: Spontaneous
  Country: US (occurrence: US)
  Receive Date: 20250624
  Receipt Date: 20250624
  Transmission Date: 20250717
  Serious: No
  Sender: QUAGEN PHARMACEUTICALS
  Company Number: US-QUAGEN-2025QUASPO00402

PATIENT
  Sex: Female

DRUGS (1)
  1. LIDOCAINE [Suspect]
     Active Substance: LIDOCAINE
     Indication: Pain
     Route: 065

REACTIONS (1)
  - Drug ineffective for unapproved indication [Unknown]
